FAERS Safety Report 7246592 (Version 23)
Quarter: 2021Q4

REPORT INFORMATION
  Report Type: Spontaneous
  Country: GB (occurrence: GB)
  Receive Date: 20100114
  Receipt Date: 20211231
  Transmission Date: 20220304
  Serious: Yes (Other)
  Sender: FDA-Public Use
  Company Number: GB-GILEAD-2009-0025174

PATIENT
  Age: 42 Year
  Sex: Female
  Weight: 74 kg

DRUGS (32)
  1. TRUVADA [Suspect]
     Active Substance: EMTRICITABINE\TENOFOVIR DISOPROXIL FUMARATE
     Indication: HIV infection
     Dosage: 1 DF, QD
     Route: 048
     Dates: start: 20070605, end: 20081023
  2. TRUVADA [Suspect]
     Active Substance: EMTRICITABINE\TENOFOVIR DISOPROXIL FUMARATE
     Dosage: 1 DF, QD
     Route: 048
     Dates: start: 20070905, end: 20081023
  3. INTELENCE [Suspect]
     Active Substance: ETRAVIRINE
     Indication: HIV infection
     Dosage: 1000 MG, QD
     Route: 048
     Dates: start: 20081023
  4. INTELENCE [Suspect]
     Active Substance: ETRAVIRINE
     Dosage: 500 MG, BID
     Route: 048
     Dates: start: 20081023
  5. INTELENCE [Suspect]
     Active Substance: ETRAVIRINE
     Dosage: 1000 MG, Q6H
     Route: 048
  6. PREZISTA [Suspect]
     Active Substance: DARUNAVIR ETHANOLATE
     Indication: HIV infection
     Dosage: 1200 MG
     Route: 048
     Dates: start: 20081023
  7. PREZISTA [Suspect]
     Active Substance: DARUNAVIR ETHANOLATE
     Dosage: 600 MG, BID
     Route: 048
     Dates: start: 20081023
  8. ISENTRESS [Suspect]
     Active Substance: RALTEGRAVIR POTASSIUM
     Indication: HIV infection
     Dosage: 400 MG, QD
     Route: 048
     Dates: start: 20081023, end: 20090221
  9. ISENTRESS [Suspect]
     Active Substance: RALTEGRAVIR POTASSIUM
     Dosage: BID
     Route: 048
  10. NORVIR [Suspect]
     Active Substance: RITONAVIR
     Indication: HIV infection
     Dosage: 400 MG, QD
     Route: 048
     Dates: start: 20060905
  11. NORVIR [Suspect]
     Active Substance: RITONAVIR
     Indication: HIV infection
     Dosage: 200 MG, BID
     Route: 048
     Dates: start: 20060905, end: 20081022
  12. NORVIR [Suspect]
     Active Substance: RITONAVIR
     Dosage: 400 MG, BID
     Route: 065
  13. NORVIR [Suspect]
     Active Substance: RITONAVIR
     Dosage: 100 MG, BID
     Route: 048
     Dates: start: 20081023
  14. APTIVUS [Suspect]
     Active Substance: TIPRANAVIR
     Indication: HIV infection
     Dosage: UNK
     Route: 048
     Dates: start: 20060905, end: 20081023
  15. APTIVUS [Suspect]
     Active Substance: TIPRANAVIR
     Indication: HIV infection
     Dosage: 500 MG, BID
     Route: 048
     Dates: start: 20060905, end: 20081023
  16. ZIDOVUDINE [Suspect]
     Active Substance: ZIDOVUDINE
     Indication: Antiviral prophylaxis
     Dosage: UNK
     Route: 048
  17. ZIDOVUDINE [Suspect]
     Active Substance: ZIDOVUDINE
     Indication: Product used for unknown indication
     Dosage: UNK
     Route: 048
  18. ZIDOVUDINE [Suspect]
     Active Substance: ZIDOVUDINE
     Dosage: UNK
     Route: 048
  19. ZIDOVUDINE [Suspect]
     Active Substance: ZIDOVUDINE
     Dosage: UNK
     Route: 048
  20. NOVORAPID [Concomitant]
     Active Substance: INSULIN ASPART
     Indication: Gestational diabetes
     Dosage: 200 MG, QD
     Route: 058
     Dates: end: 20091022
  21. NOVORAPID [Concomitant]
     Active Substance: INSULIN ASPART
     Dosage: 400 MG, QD
     Route: 065
  22. NOVORAPID [Concomitant]
     Active Substance: INSULIN ASPART
     Dosage: 200 MG
     Route: 064
  23. NOVORAPID [Concomitant]
     Active Substance: INSULIN ASPART
     Dosage: 200 MG
     Route: 064
  24. PREDNISOLONE [Concomitant]
     Active Substance: PREDNISOLONE
     Indication: Product used for unknown indication
     Dosage: 25 MG, UNK
     Route: 048
  25. PREDNISOLONE [Concomitant]
     Active Substance: PREDNISOLONE
     Indication: Product used for unknown indication
     Dosage: 25 MG
     Route: 064
  26. NITROUS OXIDE [Concomitant]
     Active Substance: NITROUS OXIDE
     Indication: Product used for unknown indication
     Dosage: UNK
     Route: 065
  27. NITROUS OXIDE [Concomitant]
     Active Substance: NITROUS OXIDE
     Route: 064
  28. OXYGEN [Concomitant]
     Active Substance: OXYGEN
     Indication: Product used for unknown indication
     Dosage: 25 MG, UNK
     Route: 055
  29. OXYGEN [Concomitant]
     Active Substance: OXYGEN
     Indication: Product used for unknown indication
     Route: 064
  30. ENFUVIRTIDE [Concomitant]
     Active Substance: ENFUVIRTIDE
     Indication: Product used for unknown indication
     Dosage: UNK
     Route: 042
  31. ENFUVIRTIDE [Concomitant]
     Active Substance: ENFUVIRTIDE
     Route: 064
  32. INSULIN NOS [Concomitant]
     Active Substance: INSULIN NOS
     Indication: Gestational diabetes
     Dosage: UNK
     Route: 065

REACTIONS (6)
  - Lipodystrophy acquired [Recovered/Resolved]
  - Drug-induced liver injury [Unknown]
  - Alanine aminotransferase abnormal [Recovered/Resolved]
  - Premature labour [Recovered/Resolved]
  - Aspartate aminotransferase abnormal [Recovered/Resolved]
  - Exposure during pregnancy [Recovered/Resolved]

NARRATIVE: CASE EVENT DATE: 20090221
